FAERS Safety Report 7319515-1 (Version None)
Quarter: 2011Q1

REPORT INFORMATION
  Report Type: 
  Country: None (occurrence: None)
  Receive Date: 20110228
  Receipt Date: 20100427
  Transmission Date: 20110831
  Serious: No
  Sender: FDA-Public Use
  Company Number: A0856910A

PATIENT
  Age: 60 Year
  Sex: Male

DRUGS (9)
  1. FOLIC ACID [Concomitant]
  2. METOPROLOL [Concomitant]
  3. LAMICTAL [Suspect]
     Dosage: 100MG PER DAY
     Route: 048
  4. NEXIUM [Concomitant]
  5. CRESTOR [Concomitant]
  6. WELLBUTRIN XL [Concomitant]
  7. DILZEM XL [Concomitant]
  8. TOPAMAX [Concomitant]
  9. ASPIRIN [Concomitant]

REACTIONS (3)
  - HYPERHIDROSIS [None]
  - ANXIETY [None]
  - TREMOR [None]
